FAERS Safety Report 8204705-6 (Version None)
Quarter: 2012Q1

REPORT INFORMATION
  Report Type: 
  Country: None (occurrence: None)
  Receive Date: 20120313
  Receipt Date: 20120302
  Transmission Date: 20120608
  Serious: Yes (Other)
  Sender: FDA-Public Use
  Company Number: US-CELGENEUS-163-21880-12030373

PATIENT
  Sex: Female
  Weight: 78.5 kg

DRUGS (12)
  1. M.V.I. [Concomitant]
     Route: 065
  2. HYDROMORPHONE HCL [Concomitant]
     Route: 065
  3. SYNTHROID [Concomitant]
     Route: 065
  4. LORAZEPAM [Concomitant]
     Route: 065
  5. REVLIMID [Suspect]
     Indication: LYMPHOMA
     Dosage: 15 MILLIGRAM
     Route: 048
     Dates: start: 20110211, end: 20110602
  6. FENTANYL [Concomitant]
     Route: 065
  7. TAMOXIFEN CITRATE [Concomitant]
     Route: 065
     Dates: start: 20110901
  8. ESOMEPRAZOLE SODIUM [Concomitant]
     Route: 065
  9. CRESTOR [Concomitant]
     Route: 065
  10. FERROUS SULFATE TAB [Concomitant]
     Route: 065
  11. METHYLPREDNISOLONE [Concomitant]
     Route: 065
  12. VITAMIN B COMPLEX CAP [Concomitant]
     Route: 065

REACTIONS (1)
  - MYELODYSPLASTIC SYNDROME [None]
